FAERS Safety Report 16726035 (Version 1)
Quarter: 2019Q3

REPORT INFORMATION
  Report Type: Spontaneous
  Country: FR (occurrence: FR)
  Receive Date: 20190821
  Receipt Date: 20190821
  Transmission Date: 20191005
  Serious: Yes (Other)
  Sender: FDA-Public Use
  Company Number: FR-ALLERGAN-1934402US

PATIENT
  Sex: Female
  Weight: 65 kg

DRUGS (3)
  1. ESCITALOPRAM OXALATE - BP [Suspect]
     Active Substance: ESCITALOPRAM OXALATE
     Indication: DEPRESSION
     Dosage: 10 MG, QD
     Route: 048
     Dates: start: 20190722
  2. THERALENE [Suspect]
     Active Substance: TRIMEPRAZINE
     Indication: INSOMNIA
     Dosage: 20 MG, QD
     Route: 048
     Dates: start: 20190717, end: 20190805
  3. LARGACTIL [Suspect]
     Active Substance: CHLORPROMAZINE
     Indication: ANXIETY
     Dosage: 1 DF, QD
     Route: 048
     Dates: start: 20190717, end: 20190805

REACTIONS (4)
  - Pruritus [Recovering/Resolving]
  - Nausea [Recovering/Resolving]
  - Hepatitis [Not Recovered/Not Resolved]
  - Jaundice [Recovering/Resolving]

NARRATIVE: CASE EVENT DATE: 20190805
